FAERS Safety Report 5098616-5 (Version None)
Quarter: 2006Q3

REPORT INFORMATION
  Report Type: 
  Country: None (occurrence: None)
  Receive Date: 20060906
  Receipt Date: 20060316
  Transmission Date: 20061208
  Serious: No
  Sender: FDA-Public Use
  Company Number: US-GLAXOSMITHKLINE-A0597867A

PATIENT
  Age: 60 Year
  Sex: Female

DRUGS (4)
  1. REQUIP [Suspect]
     Indication: PARKINSON'S DISEASE
     Dosage: .5MG THREE TIMES PER DAY
     Route: 048
     Dates: start: 20050501
  2. NEXIUM [Concomitant]
  3. SINEMET [Concomitant]
  4. CALCIUM GLUCONATE [Concomitant]

REACTIONS (2)
  - BLOOD IRON DECREASED [None]
  - WEIGHT DECREASED [None]
